FAERS Safety Report 5298037-6 (Version None)
Quarter: 2007Q2

REPORT INFORMATION
  Report Type: 
  Country: None (occurrence: None)
  Receive Date: 20070409
  Receipt Date: 20070328
  Transmission Date: 20071010
  Serious: Yes (Death, Hospitalization)
  Sender: FDA-Public Use
  Company Number: 2006SP008425

PATIENT
  Age: 30 Year
  Sex: Female
  Weight: 53.6 kg

DRUGS (3)
  1. INTRON A [Suspect]
     Indication: HEPATITIS C
     Dosage: 6 MIU; QD; IM
     Route: 030
     Dates: start: 20061113, end: 20061118
  2. INTRON A [Suspect]
     Indication: HEPATITIS C
     Dosage: 6 MIU; QD; IM
     Route: 030
     Dates: start: 20061120, end: 20061124
  3. INTRON A [Suspect]
     Indication: HEPATITIS C
     Dosage: 6 MIU; QD; IM
     Route: 030
     Dates: start: 20061125, end: 20061206

REACTIONS (8)
  - ACUTE RESPIRATORY DISTRESS SYNDROME [None]
  - DISSEMINATED INTRAVASCULAR COAGULATION [None]
  - DRUG INEFFECTIVE [None]
  - IMMUNE SYSTEM DISORDER [None]
  - LOBAR PNEUMONIA [None]
  - PNEUMOCOCCAL INFECTION [None]
  - PNEUMONIA BACTERIAL [None]
  - SPUTUM CULTURE POSITIVE [None]
